FAERS Safety Report 5281005-8 (Version None)
Quarter: 2007Q1

REPORT INFORMATION
  Report Type: 
  Country: None (occurrence: None)
  Receive Date: 20061229
  Receipt Date: 20060807
  Transmission Date: 20070707
  Serious: Yes (Other)
  Sender: FDA-Public Use
  Company Number: 2006UW15664

PATIENT
  Age: 53 Year
  Sex: Female
  Weight: 81.646 kg

DRUGS (5)
  1. CRESTOR [Suspect]
     Indication: BLOOD CHOLESTEROL INCREASED
     Dosage: 5 MG DAILY PO
     Route: 048
     Dates: start: 20060804
  2. SYNTHROID [Concomitant]
  3. TRICOR [Concomitant]
  4. FLEXERIL [Concomitant]
  5. PROZAC [Concomitant]

REACTIONS (1)
  - PAIN IN JAW [None]
